FAERS Safety Report 25597744 (Version 1)
Quarter: 2025Q3

REPORT INFORMATION
  Report Type: Spontaneous
  Country: US (occurrence: None)
  Receive Date: 20250625
  Receipt Date: 20250625
  Transmission Date: 20251020
  Serious: Yes (unspecified)
  Sender: FDA-CTU
  Company Number: None

PATIENT
  Age: 45 Year
  Sex: Male
  Weight: 75.15 kg

DRUGS (2)
  1. UNAPPROVED DRUG COSMETIC PRODUCTS [Suspect]
     Active Substance: UNAPPROVED DRUG COSMETIC PRODUCTS
     Dates: start: 19931101, end: 20250625
  2. ICD IMPLANTABLE [Concomitant]

REACTIONS (7)
  - Skin texture abnormal [None]
  - Rash [None]
  - Skin exfoliation [None]
  - Skin weeping [None]
  - Eczema [None]
  - Thermal burn [None]
  - Application site reaction [None]

NARRATIVE: CASE EVENT DATE: 20250101
